FAERS Safety Report 4861175-3 (Version None)
Quarter: 2005Q4

REPORT INFORMATION
  Report Type: 
  Country: None (occurrence: None)
  Receive Date: 20051215
  Receipt Date: 20051206
  Transmission Date: 20060501
  Serious: Yes (Other)
  Sender: FDA-Public Use
  Company Number: GBWYE208306DEC05

PATIENT
  Sex: Male

DRUGS (1)
  1. EFFEXOR XR [Suspect]
     Indication: DEPRESSION
     Dosage: 75 MG
     Dates: start: 20011001, end: 20050208

REACTIONS (7)
  - DRUG EXPOSURE DURING PREGNANCY [None]
  - DYSKINESIA [None]
  - HYDROCELE [None]
  - NEONATAL DISORDER [None]
  - PREMATURE BABY [None]
  - TONGUE DISORDER [None]
  - TREMOR NEONATAL [None]
